FAERS Safety Report 25064985 (Version 1)
Quarter: 2025Q1

REPORT INFORMATION
  Report Type: Spontaneous
  Country: CN (occurrence: CN)
  Receive Date: 20250311
  Receipt Date: 20250311
  Transmission Date: 20250409
  Serious: Yes (Other)
  Sender: COSETTE PHARMACEUTICALS INC
  Company Number: CN-SA-2025SA061947

PATIENT

DRUGS (3)
  1. AMBIEN [Suspect]
     Active Substance: ZOLPIDEM TARTRATE
     Indication: Self-medication
     Route: 048
     Dates: start: 20250218, end: 20250218
  2. LORAZEPAM [Suspect]
     Active Substance: LORAZEPAM
     Indication: Self-medication
     Route: 048
     Dates: start: 20250218, end: 20250218
  3. DIAZEPAM [Suspect]
     Active Substance: DIAZEPAM
     Indication: Self-medication
     Route: 048
     Dates: start: 20250219, end: 20250219

REACTIONS (9)
  - Toxicity to various agents [Unknown]
  - Chest discomfort [Unknown]
  - Palpitations [Unknown]
  - Chest pain [Unknown]
  - Abdominal pain [Unknown]
  - Diarrhoea [Unknown]
  - Dyspnoea [Unknown]
  - Nausea [Unknown]
  - Intentional overdose [Unknown]

NARRATIVE: CASE EVENT DATE: 20250218
